FAERS Safety Report 6891372-7 (Version None)
Quarter: 2010Q3

REPORT INFORMATION
  Report Type: 
  Country: None (occurrence: None)
  Receive Date: 20100731
  Receipt Date: 20060227
  Transmission Date: 20110219
  Serious: No
  Sender: FDA-Public Use
  Company Number: US-PFIZER INC-2007058647

PATIENT
  Sex: Male

DRUGS (2)
  1. NORVASC [Suspect]
  2. MICARDIS [Concomitant]

REACTIONS (2)
  - GINGIVAL SWELLING [None]
  - JOINT SWELLING [None]
